FAERS Safety Report 9295968 (Version 1)
Quarter: 2013Q2

REPORT INFORMATION
  Report Type: Spontaneous
  Country: US (occurrence: None)
  Receive Date: 20130516
  Receipt Date: 20130516
  Transmission Date: 20140414
  Serious: Yes (Hospitalization)
  Sender: FDA-Public Use
  Company Number: None

PATIENT
  Sex: Female
  Weight: 90.7 kg

DRUGS (7)
  1. PERAMPANEL [Suspect]
     Indication: CONVULSION
     Route: 048
     Dates: start: 20130403
  2. LAMOTRIGINE [Concomitant]
  3. LEVETIRACETAM [Concomitant]
  4. ATIVAN [Concomitant]
  5. FERROUS SULFATE [Concomitant]
  6. MOTRIN [Concomitant]
  7. SORE THROAT RELIEF SPRAY [Concomitant]

REACTIONS (2)
  - Pain in extremity [None]
  - Grand mal convulsion [None]
